FAERS Safety Report 18494094 (Version 1)
Quarter: 2020Q4

REPORT INFORMATION
  Report Type: Spontaneous
  Country: US (occurrence: US)
  Receive Date: 20201111
  Receipt Date: 20201111
  Transmission Date: 20210114
  Serious: Yes (Other)
  Sender: FDA-Public Use
  Company Number: US-CANTON LABORATORIES, LLC-2095835

PATIENT
  Age: 41 Year
  Sex: Male

DRUGS (1)
  1. NAPROSYN [Suspect]
     Active Substance: NAPROXEN
     Indication: PROCEDURAL PAIN
     Route: 065

REACTIONS (7)
  - Epistaxis [Unknown]
  - Gingival bleeding [Unknown]
  - Haematuria [Unknown]
  - Haemarthrosis [Unknown]
  - Thrombocytopenia [Recovered/Resolved]
  - Drug ineffective [Unknown]
  - Petechiae [Unknown]
